FAERS Safety Report 18840863 (Version 1)
Quarter: 2021Q1

REPORT INFORMATION
  Report Type: Spontaneous
  Country: US (occurrence: US)
  Receive Date: 20210204
  Receipt Date: 20210204
  Transmission Date: 20210419
  Serious: No
  Sender: FDA-Public Use
  Company Number: US-009507513-2101USA003978

PATIENT
  Age: 52 Year
  Sex: Male

DRUGS (3)
  1. INTEGRILIN [Suspect]
     Active Substance: EPTIFIBATIDE
     Indication: SPINAL STROKE
     Dosage: 6 MILLIGRAM, TOTAL
     Route: 013
  2. VERAPAMIL [Concomitant]
     Active Substance: VERAPAMIL HYDROCHLORIDE
     Indication: SPINAL STROKE
     Dosage: 5 MILLIGRAM, TOTAL
     Route: 013
  3. ALTEPLASE. [Concomitant]
     Active Substance: ALTEPLASE
     Indication: SPINAL STROKE
     Dosage: 4 MILLIGRAM, TOTAL
     Route: 013

REACTIONS (1)
  - Off label use [Unknown]
